FAERS Safety Report 4554738-6 (Version None)
Quarter: 2005Q1

REPORT INFORMATION
  Report Type: 
  Country: None (occurrence: None)
  Receive Date: 20050118
  Receipt Date: 20040505
  Transmission Date: 20050727
  Serious: Yes (Other)
  Sender: FDA-Public Use
  Company Number: US-GLAXOSMITHKLINE-A0509920A

PATIENT
  Sex: Female

DRUGS (1)
  1. PAXIL [Suspect]
     Route: 048
     Dates: start: 20010101

REACTIONS (19)
  - ANXIETY [None]
  - CRYING [None]
  - DIARRHOEA [None]
  - DISABILITY [None]
  - DYSGEUSIA [None]
  - DYSSTASIA [None]
  - HYPERHIDROSIS [None]
  - IMMOBILE [None]
  - INFLUENZA [None]
  - INSOMNIA [None]
  - NAUSEA [None]
  - PARAESTHESIA [None]
  - PHARYNGITIS STREPTOCOCCAL [None]
  - SINUSITIS [None]
  - STOMACH DISCOMFORT [None]
  - SUICIDAL IDEATION [None]
  - TREMOR [None]
  - ULCER [None]
  - VERTIGO [None]
